FAERS Safety Report 6071046-5 (Version None)
Quarter: 2009Q1

REPORT INFORMATION
  Report Type: 
  Country: None (occurrence: None)
  Receive Date: 20090209
  Receipt Date: 20080808
  Transmission Date: 20090719
  Serious: No
  Sender: FDA-Public Use
  Company Number: A0556031A

PATIENT
  Age: 57 Year
  Sex: Female

DRUGS (2)
  1. PAXIL [Suspect]
     Dosage: 37.5MG PER DAY
     Route: 048
  2. PAXIL [Suspect]
     Dosage: 20MG TWICE PER DAY
     Route: 048

REACTIONS (8)
  - DIZZINESS [None]
  - FATIGUE [None]
  - HANGOVER [None]
  - NAUSEA [None]
  - NIGHT SWEATS [None]
  - PSYCHOMOTOR HYPERACTIVITY [None]
  - RETCHING [None]
  - WITHDRAWAL SYNDROME [None]
